FAERS Safety Report 14356517 (Version 2)
Quarter: 2018Q1

REPORT INFORMATION
  Report Type: Spontaneous
  Country: US (occurrence: US)
  Receive Date: 20180105
  Receipt Date: 20180207
  Transmission Date: 20180509
  Serious: No
  Sender: FDA-Public Use
  Company Number: US-MATRIXX INITIATIVES, INC.-2039516

PATIENT
  Age: 56 Year
  Sex: Male
  Weight: 72.73 kg

DRUGS (3)
  1. PAXIL [Concomitant]
     Active Substance: PAROXETINE HYDROCHLORIDE
  2. UNSPECIFIED VITAMIN SUPPLEMENTS [Concomitant]
  3. ZICAM COLD REMEDY RAPIDMELTS [Suspect]
     Active Substance: HOMEOPATHICS\ZINC ACETATE ANHYDROUS\ZINC GLUCONATE
     Indication: OROPHARYNGEAL PAIN
     Route: 048
     Dates: start: 20180104, end: 20180104

REACTIONS (1)
  - Ageusia [Recovered/Resolved]
